FAERS Safety Report 9327873 (Version 2)
Quarter: 2013Q4

REPORT INFORMATION
  Report Type: Spontaneous
  Country: GB (occurrence: GB)
  Receive Date: 20130604
  Receipt Date: 20131029
  Transmission Date: 20140711
  Serious: Yes (Hospitalization, Other)
  Sender: FDA-Public Use
  Company Number: GB-JNJFOC-20130520287

PATIENT
  Age: 68 Year
  Sex: Male
  Weight: 73 kg

DRUGS (8)
  1. IBUPROFEN [Suspect]
     Route: 048
  2. IBUPROFEN [Suspect]
     Indication: SCIATICA
     Dosage: AS NECESSARY
     Route: 048
     Dates: start: 20130404, end: 20130423
  3. IBUPROFEN [Suspect]
     Indication: SCIATICA
     Dosage: AS NECESSARY
     Route: 048
     Dates: start: 20130424, end: 20130425
  4. AMLODIPINE [Concomitant]
     Indication: HYPERTENSION
     Route: 048
  5. BENDROFLUMETHIAZIDE [Concomitant]
     Indication: HYPERTENSION
     Route: 048
  6. CO-DYDRAMOL [Concomitant]
     Indication: ANALGESIC THERAPY
     Route: 048
  7. MESALAZINE [Concomitant]
     Indication: COLITIS ULCERATIVE
     Route: 048
  8. CODEINE PHOSPHATE / PARACETAMOL [Concomitant]
     Indication: ANALGESIC THERAPY
     Route: 048

REACTIONS (6)
  - Diarrhoea [Recovering/Resolving]
  - Nausea [Recovering/Resolving]
  - Vomiting [Recovering/Resolving]
  - Haematemesis [Recovering/Resolving]
  - Gastrointestinal haemorrhage [Recovering/Resolving]
  - Melaena [Recovering/Resolving]
